FAERS Safety Report 8991044 (Version 1)
Quarter: 2012Q4

REPORT INFORMATION
  Report Type: Spontaneous
  Country: BR (occurrence: None)
  Receive Date: 20121221
  Receipt Date: 20121221
  Transmission Date: 20130627
  Serious: Yes (Death, Other)
  Sender: FDA-Public Use
  Company Number: DSU-2012-09942

PATIENT
  Age: 84 Year
  Sex: Male

DRUGS (2)
  1. OLMETEC HCT (HYDROCHLOROTHIAZIDE, OLMESARTAN MEDOXOMIL) (TABLET) (HYDROCHLOROTHIAZIDE, OLMESARTAN MEDOXOMIL) [Suspect]
     Indication: BLOOD PRESSURE HIGH
     Dosage: 20/12.5MG (QD), Per oral
     Route: 048
     Dates: start: 20080121
  2. ATENOLOL (ATENOLOL) (ATENOLOL) [Concomitant]

REACTIONS (1)
  - Myocardial infarction [None]
